FAERS Safety Report 5090706-6 (Version None)
Quarter: 2006Q3

REPORT INFORMATION
  Report Type: 
  Country: None (occurrence: None)
  Receive Date: 20060828
  Receipt Date: 20060824
  Transmission Date: 20061208
  Serious: Yes (Other)
  Sender: FDA-Public Use
  Company Number: DE-BOEHRINGER INGELHEIM PHARMACEUTICALS, INC.-2006-DE-04443DE

PATIENT
  Sex: Male
  Weight: 87 kg

DRUGS (2)
  1. AGGRENOX [Suspect]
     Indication: CEREBROVASCULAR ACCIDENT
     Dates: start: 20060314, end: 20060505
  2. AGGRENOX [Suspect]
     Indication: CEREBROVASCULAR INSUFFICIENCY

REACTIONS (1)
  - EYE HAEMORRHAGE [None]
